FAERS Safety Report 18774977 (Version 1)
Quarter: 2021Q1

REPORT INFORMATION
  Report Type: Spontaneous
  Country: US (occurrence: US)
  Receive Date: 20210122
  Receipt Date: 20210122
  Transmission Date: 20210419
  Serious: No
  Sender: FDA-Public Use
  Company Number: US-STRIDES ARCOLAB LIMITED-2020SP014750

PATIENT
  Age: 18 Year
  Sex: Female

DRUGS (1)
  1. ITRACONAZOLE. [Suspect]
     Active Substance: ITRACONAZOLE
     Indication: SINUSITIS
     Dosage: 200 MILLIGRAM, BID
     Route: 048

REACTIONS (1)
  - Nausea [Recovered/Resolved]
